FAERS Safety Report 5052854-6 (Version None)
Quarter: 2006Q3

REPORT INFORMATION
  Report Type: 
  Country: None (occurrence: None)
  Receive Date: 20060712
  Receipt Date: 20060705
  Transmission Date: 20061208
  Serious: Yes (Other)
  Sender: FDA-Public Use
  Company Number: 200614427BWH

PATIENT

DRUGS (2)
  1. TRASYLOL [Suspect]
     Indication: CARDIAC OPERATION
     Dosage: 200 ML, ONCE, INTRAVENOUS
     Route: 042
  2. VANCOMYCIN [Suspect]
     Dosage: INTRAVENOUS
     Route: 042

REACTIONS (1)
  - OTOTOXICITY [None]
